FAERS Safety Report 7358534-6 (Version None)
Quarter: 2011Q1

REPORT INFORMATION
  Report Type: 
  Country: None (occurrence: None)
  Receive Date: 20110317
  Receipt Date: 20110310
  Transmission Date: 20110831
  Serious: Yes (Death, Other)
  Sender: FDA-Public Use
  Company Number: TW-JNJFOC-20110306180

PATIENT
  Age: 14 Year
  Sex: Male

DRUGS (1)
  1. DOXORUBICIN HCL [Suspect]
     Indication: BONE SARCOMA
     Route: 042

REACTIONS (3)
  - CHRONIC MYELOMONOCYTIC LEUKAEMIA [None]
  - DEATH [None]
  - OFF LABEL USE [None]
